FAERS Safety Report 14849042 (Version 2)
Quarter: 2018Q2

REPORT INFORMATION
  Report Type: Report from Study
  Country: BR (occurrence: BR)
  Receive Date: 20180504
  Receipt Date: 20180515
  Transmission Date: 20180711
  Serious: Yes (Other)
  Sender: FDA-Public Use
  Company Number: PHHY2016BR035371

PATIENT
  Sex: Female
  Weight: 73 kg

DRUGS (3)
  1. EXJADE [Suspect]
     Active Substance: DEFERASIROX
     Indication: MYELOFIBROSIS
     Dosage: 1250 MG (15 MG/KG), QD
     Route: 048
     Dates: start: 2015
  2. EXJADE [Suspect]
     Active Substance: DEFERASIROX
     Indication: APLASTIC ANAEMIA
     Dosage: 2 DF OF 500 MG (10 MG/KG), QD
     Route: 048
     Dates: start: 2015
  3. EXJADE [Suspect]
     Active Substance: DEFERASIROX
     Dosage: 2000 MG, QD
     Route: 048

REACTIONS (13)
  - Ageusia [Not Recovered/Not Resolved]
  - Abdominal pain [Unknown]
  - Vomiting [Not Recovered/Not Resolved]
  - Malaise [Not Recovered/Not Resolved]
  - Diarrhoea [Not Recovered/Not Resolved]
  - Serum ferritin decreased [Unknown]
  - Anosmia [Not Recovered/Not Resolved]
  - Swelling [Unknown]
  - Feeling abnormal [Unknown]
  - Retching [Unknown]
  - Paralysis [Unknown]
  - Dizziness [Unknown]
  - Serum ferritin increased [Unknown]
